FAERS Safety Report 5943870-8 (Version None)
Quarter: 2008Q4

REPORT INFORMATION
  Report Type: 
  Country: None (occurrence: None)
  Receive Date: 20081104
  Receipt Date: 20081021
  Transmission Date: 20090506
  Serious: Yes (Other)
  Sender: FDA-Public Use
  Company Number: 230844K08USA

PATIENT
  Age: 44 Year
  Sex: Male

DRUGS (3)
  1. REBIF [Suspect]
     Indication: MULTIPLE SCLEROSIS
     Dosage: 44 MCG, 3 IN 1 WEEKS, SUBCUTANEOUS
     Route: 058
     Dates: start: 20080805
  2. COUMADIN [Concomitant]
  3. MOTRIN [Concomitant]

REACTIONS (3)
  - INJECTION SITE PAIN [None]
  - PAIN [None]
  - PROTHROMBIN TIME ABNORMAL [None]
